FAERS Safety Report 24348259 (Version 3)
Quarter: 2025Q1

REPORT INFORMATION
  Report Type: Spontaneous
  Country: US (occurrence: US)
  Receive Date: 20240923
  Receipt Date: 20250117
  Transmission Date: 20250409
  Serious: Yes (Other)
  Sender: NOVO NORDISK
  Company Number: US-NOVOPROD-1284016

PATIENT
  Sex: Female

DRUGS (1)
  1. OZEMPIC [Suspect]
     Active Substance: SEMAGLUTIDE
     Indication: Diabetes mellitus
     Dosage: 5 MG, QW
     Route: 058

REACTIONS (5)
  - Breast cancer metastatic [Unknown]
  - Lymphoma [Unknown]
  - Illness [Unknown]
  - Brain fog [Unknown]
  - Constipation [Unknown]
